FAERS Safety Report 9828932 (Version 5)
Quarter: 2014Q1

REPORT INFORMATION
  Report Type: Spontaneous
  Country: AU (occurrence: AU)
  Receive Date: 20140118
  Receipt Date: 20140331
  Transmission Date: 20141002
  Serious: Yes (Hospitalization, Other)
  Sender: FDA-Public Use
  Company Number: AU-ABBVIE-14P-008-1185860-00

PATIENT
  Age: 51 Year
  Sex: Female

DRUGS (7)
  1. HUMIRA [Suspect]
     Indication: PSORIATIC ARTHROPATHY
     Dates: start: 20131204, end: 20131218
  2. PREDNISOLONE [Concomitant]
     Indication: PSORIATIC ARTHROPATHY
  3. CELEBREX [Concomitant]
     Indication: PSORIATIC ARTHROPATHY
  4. METHOTREXATE [Concomitant]
     Indication: PSORIATIC ARTHROPATHY
  5. VENTOLIN [Concomitant]
     Indication: PRODUCT USED FOR UNKNOWN INDICATION
     Dosage: TWICE A DAY
  6. PREDNISOLONE [Concomitant]
     Indication: PRODUCT USED FOR UNKNOWN INDICATION
  7. SERETIDE [Concomitant]
     Indication: PRODUCT USED FOR UNKNOWN INDICATION
     Dosage: MORNING AND NIGHT

REACTIONS (9)
  - Pneumothorax [Not Recovered/Not Resolved]
  - Asthma [Not Recovered/Not Resolved]
  - Pneumonia [Recovered/Resolved]
  - Bronchitis [Unknown]
  - Fatigue [Not Recovered/Not Resolved]
  - Asthma [Not Recovered/Not Resolved]
  - Pharyngitis [Recovered/Resolved]
  - Rash [Recovered/Resolved]
  - Lung infection [Not Recovered/Not Resolved]
